FAERS Safety Report 6244718-7 (Version None)
Quarter: 2009Q2

REPORT INFORMATION
  Report Type: 
  Country: None (occurrence: None)
  Receive Date: 20090623
  Receipt Date: 20090623
  Transmission Date: 20091009
  Serious: Yes (Hospitalization)
  Sender: FDA-Public Use
  Company Number: None

PATIENT
  Age: 72 Year
  Sex: Male
  Weight: 59 kg

DRUGS (10)
  1. CIPRO [Suspect]
     Indication: URINARY TRACT INFECTION
     Dosage: TID PO RECENT
     Route: 048
  2. ETOH [Suspect]
  3. ASPIRIN [Concomitant]
  4. COMPAZENE [Concomitant]
  5. CRESTOR [Concomitant]
  6. DGIOXIN [Concomitant]
  7. LOMOTIL [Concomitant]
  8. MAG OX [Concomitant]
  9. NEXIUM [Concomitant]
  10. TOPROL-XL [Concomitant]

REACTIONS (5)
  - AGITATION [None]
  - CONFUSIONAL STATE [None]
  - INAPPROPRIATE SCHEDULE OF DRUG ADMINISTRATION [None]
  - INSOMNIA [None]
  - URINARY TRACT INFECTION [None]
